FAERS Safety Report 17654674 (Version 3)
Quarter: 2022Q4

REPORT INFORMATION
  Report Type: Spontaneous
  Country: CA (occurrence: CA)
  Receive Date: 20200410
  Receipt Date: 20221207
  Transmission Date: 20230113
  Serious: Yes (Other)
  Sender: FDA-Public Use
  Company Number: CA-SPECGX-T202000719

PATIENT
  Age: 62 Year
  Sex: Female

DRUGS (8)
  1. METHADOSE [Suspect]
     Active Substance: METHADONE HYDROCHLORIDE
     Indication: Product used for unknown indication
     Dosage: 10 MILLIGRAM, TID
     Route: 048
     Dates: start: 2013, end: 2015
  2. CYMBALTA [Suspect]
     Active Substance: DULOXETINE HYDROCHLORIDE
     Indication: Product used for unknown indication
     Dosage: 60 MILLIGRAM, QD
     Route: 048
  3. ETANERCEPT [Suspect]
     Active Substance: ETANERCEPT
     Indication: Product used for unknown indication
     Dosage: 50 MILLIGRAM, WEEKLY
     Route: 058
     Dates: start: 2007, end: 20180705
  4. ETANERCEPT [Suspect]
     Active Substance: ETANERCEPT
     Dosage: 17.5 MILLIGRAM, WEEKLY
     Route: 058
  5. HUMIRA [Suspect]
     Active Substance: ADALIMUMAB
     Indication: Psoriatic arthropathy
     Dosage: 40 MILLIGRAM, (1 EVERY 2 WEEK)
     Route: 058
     Dates: start: 2007
  6. INFLIXIMAB [Suspect]
     Active Substance: INFLIXIMAB
     Indication: Product used for unknown indication
     Dosage: 400 MILLIGRAM, EVERY 6 WEEKS
     Route: 042
     Dates: start: 2007, end: 20160519
  7. LYRICA [Suspect]
     Active Substance: PREGABALIN
     Indication: Product used for unknown indication
     Dosage: 300 MILLIGRAM, QD (150 MG, 2 EVERY 1 DAY)
     Route: 048
  8. METHOTREXATE [Suspect]
     Active Substance: METHOTREXATE
     Indication: Product used for unknown indication
     Dosage: 15 MILLIGRAM, WEEKLY
     Route: 065
     Dates: start: 2006, end: 201602

REACTIONS (13)
  - Suicidal ideation [Unknown]
  - Mood swings [Unknown]
  - Affective disorder [Unknown]
  - Condition aggravated [Unknown]
  - Crying [Unknown]
  - Decreased appetite [Unknown]
  - Dyspnoea [Unknown]
  - Emotional distress [Unknown]
  - Wheezing [Unknown]
  - Diarrhoea [Unknown]
  - Headache [Unknown]
  - Nausea [Unknown]
  - Drug ineffective [Unknown]
